FAERS Safety Report 7806025-8 (Version None)
Quarter: 2011Q4

REPORT INFORMATION
  Report Type: 
  Country: None (occurrence: None)
  Receive Date: 20111011
  Receipt Date: 20111006
  Transmission Date: 20120403
  Serious: Yes (Death)
  Sender: FDA-Public Use
  Company Number: US-VERTEX PHARMACEUTICALS INC.-AE-2011-000452

PATIENT
  Weight: 69.462 kg

DRUGS (8)
  1. NEURONTIN [Concomitant]
  2. NEXIUM [Concomitant]
  3. DICLOFENAC SODIUM [Concomitant]
  4. INCIVEK [Suspect]
     Indication: HEPATITIS C
     Route: 048
     Dates: start: 20110703, end: 20110705
  5. COPEGUS [Concomitant]
     Indication: HEPATITIS C
     Route: 048
     Dates: start: 20110703, end: 20110705
  6. CELEXA [Concomitant]
  7. HYDROXYZINE [Concomitant]
  8. PEGASYS [Concomitant]
     Indication: HEPATITIS C
     Route: 058
     Dates: start: 20110702, end: 20110702

REACTIONS (2)
  - FATIGUE [None]
  - ACCIDENTAL OVERDOSE [None]
